FAERS Safety Report 11541917 (Version 2)
Quarter: 2015Q4

REPORT INFORMATION
  Report Type: Spontaneous
  Country: JP (occurrence: JP)
  Receive Date: 20150923
  Receipt Date: 20151016
  Transmission Date: 20160304
  Serious: Yes (Other)
  Sender: FDA-Public Use
  Company Number: JP-BAUSCH-BL-2015-018494

PATIENT
  Age: 47 Year
  Sex: Female

DRUGS (7)
  1. MIDAZOLAM [Concomitant]
     Active Substance: MIDAZOLAM\MIDAZOLAM HYDROCHLORIDE
     Indication: SEDATION
     Route: 042
     Dates: start: 20131102, end: 20131102
  2. MOVIPREP [Suspect]
     Active Substance: ASCORBIC ACID\POLYETHYLENE GLYCOL 3350\POTASSIUM CHLORIDE\SODIUM ASCORBATE\SODIUM CHLORIDE\SODIUM SULFATE
     Indication: ENDOSCOPY LARGE BOWEL
     Route: 048
     Dates: start: 20131102, end: 20131102
  3. LAXOBERON [Concomitant]
     Active Substance: SODIUM PICOSULFATE
     Indication: ENDOSCOPY LARGE BOWEL
     Route: 048
     Dates: start: 20131101, end: 20131101
  4. MAGCOROL P [Concomitant]
     Indication: ENDOSCOPY LARGE BOWEL
     Route: 048
     Dates: start: 20131101, end: 20131101
  5. YOUPIS [Concomitant]
     Indication: ENDOSCOPY LARGE BOWEL
     Route: 048
     Dates: start: 20131102, end: 20131102
  6. BAROS ANTIFOAMING [Concomitant]
     Indication: ENDOSCOPY LARGE BOWEL
     Route: 048
     Dates: start: 20131102, end: 20131102
  7. PETHIDINE HYDROCHLORIDE [Concomitant]
     Active Substance: MEPERIDINE
     Indication: SEDATION
     Route: 042
     Dates: start: 20131102, end: 20131102

REACTIONS (1)
  - Pneumatosis intestinalis [Recovering/Resolving]

NARRATIVE: CASE EVENT DATE: 20131102
